FAERS Safety Report 4627619-7 (Version None)
Quarter: 2005Q2

REPORT INFORMATION
  Report Type: 
  Country: None (occurrence: None)
  Receive Date: 20050401
  Receipt Date: 20050401
  Transmission Date: 20051028
  Serious: Yes (Death)
  Sender: FDA-Public Use
  Company Number: None

PATIENT
  Age: 34 Year
  Sex: Female
  Weight: 175.2 kg

DRUGS (2)
  1. HYDROMORPHONE HCL [Suspect]
     Indication: POST PROCEDURAL PAIN
     Dosage: INTRAVENOUS
     Route: 042
     Dates: start: 20040804, end: 20040804
  2. FENTANYL [Suspect]
     Indication: POST PROCEDURAL PAIN
     Dosage: INTRAVENOUS
     Route: 042
     Dates: start: 20040804, end: 20040804

REACTIONS (2)
  - CARDIO-RESPIRATORY ARREST [None]
  - SLEEP APNOEA SYNDROME [None]
